FAERS Safety Report 21206156 (Version 3)
Quarter: 2023Q2

REPORT INFORMATION
  Report Type: Report from Study
  Country: DE (occurrence: DE)
  Receive Date: 20220812
  Receipt Date: 20230531
  Transmission Date: 20230722
  Serious: Yes (Hospitalization, Other)
  Sender: FDA-Public Use
  Company Number: DE-CELLTRION INC.-2022DE012787

PATIENT

DRUGS (36)
  1. INFLIXIMAB-DYYB [Suspect]
     Active Substance: INFLIXIMAB-DYYB
     Indication: Axial spondyloarthritis
     Dosage: 120 MG EVERY TWO WEEKS
     Route: 058
     Dates: start: 20210820, end: 20210902
  2. METHOTREXATE SODIUM [Concomitant]
     Active Substance: METHOTREXATE SODIUM
     Dosage: 5 MG, 1/WEEK (NOT DURING ONSET OF SAE)
     Route: 048
     Dates: start: 20200911, end: 20210707
  3. METHOTREXATE SODIUM [Concomitant]
     Active Substance: METHOTREXATE SODIUM
     Dosage: 5 MG
     Dates: start: 20200522, end: 20200820
  4. ETORICOXIB [Concomitant]
     Active Substance: ETORICOXIB
     Dosage: 90 MG, 1/WEEK
     Dates: start: 20210505, end: 20211013
  5. ETORICOXIB [Concomitant]
     Active Substance: ETORICOXIB
     Dosage: 90 MG
     Dates: start: 20220815
  6. HYDROMORPHONE [Concomitant]
     Active Substance: HYDROMORPHONE
     Dosage: 3.9 B.BD MG
  7. NALOXEGOL [Concomitant]
     Active Substance: NALOXEGOL
     Dosage: 25 MG
  8. METAMIZOL [Concomitant]
     Active Substance: METAMIZOLE SODIUM
     Dosage: 40 B.BD
  9. POLYETHYLENE GLYCOLS [Concomitant]
     Active Substance: POLYETHYLENE GLYCOLS
  10. SODIUM PICOSULFATE [Concomitant]
     Active Substance: SODIUM PICOSULFATE
     Dosage: 10 MG
  11. ENOXAPARIN [Concomitant]
     Active Substance: ENOXAPARIN
     Dosage: 0.4 ML
  12. FOLIC ACID [Concomitant]
     Active Substance: FOLIC ACID
     Dosage: 5 MG
  13. PREDNISOLONE [Concomitant]
     Active Substance: PREDNISOLONE
     Dosage: UNKNOWN
     Dates: start: 20210810
  14. PREDNISOLONE [Concomitant]
     Active Substance: PREDNISOLONE
     Dosage: 20 MG
     Dates: start: 20210902
  15. PREDNISOLONE [Concomitant]
     Active Substance: PREDNISOLONE
     Dosage: 12.5 +5
     Dates: start: 20210921
  16. ESOMEPRAZOLE [Concomitant]
     Active Substance: ESOMEPRAZOLE
     Dosage: 40 MG
  17. LEVOTHYROXINE [Concomitant]
     Active Substance: LEVOTHYROXINE
     Dosage: 150 MICROGRAM
  18. ONDANSETRON [Concomitant]
     Active Substance: ONDANSETRON
     Dosage: 8 MG B.BD
  19. NYSTATIN [Concomitant]
     Active Substance: NYSTATIN
  20. MIRTAZAPINE [Concomitant]
     Active Substance: MIRTAZAPINE
     Dosage: 30 MG
  21. PREGABALIN [Concomitant]
     Active Substance: PREGABALIN
     Dosage: 25 MG
  22. RUPATADINE [Concomitant]
     Active Substance: RUPATADINE
     Dosage: 10 MG
  23. DEXAMETHASONE [Concomitant]
     Active Substance: DEXAMETHASONE
  24. NUTRISON ENERGY MULTI FIBER [Concomitant]
     Dosage: 60 ML/H
  25. HYQVIA [Concomitant]
     Active Substance: HUMAN IMMUNOGLOBULIN G\HYALURONIDASE RECOMBINANT HUMAN
     Dosage: 10MG/ML V IA S.C. PUMP SYRINGE
     Route: 058
  26. DEXPANTHENOL [Concomitant]
     Active Substance: DEXPANTHENOL
  27. NOVORAPID [Concomitant]
     Active Substance: INSULIN ASPART
     Dosage: VIA INSULIN PUMP
  28. ZINC [Concomitant]
     Active Substance: ZINC
     Dosage: 30 MG
  29. CHOLECALCIFEROL [Concomitant]
     Active Substance: CHOLECALCIFEROL
     Dosage: 1000
  30. TALTZ [Concomitant]
     Active Substance: IXEKIZUMAB
     Dosage: 160 MG
     Dates: start: 20200520, end: 20200813
  31. TALTZ [Concomitant]
     Active Substance: IXEKIZUMAB
     Dosage: 80 MG
     Dates: start: 20200909, end: 20210312
  32. OLUMIANT [Concomitant]
     Active Substance: BARICITINIB
     Dosage: 4 MG
     Dates: start: 20200526, end: 20200829
  33. RINVOQ [Concomitant]
     Active Substance: UPADACITINIB
     Dosage: 30 MG
     Dates: start: 20200916, end: 20201015
  34. RINVOQ [Concomitant]
     Active Substance: UPADACITINIB
     Dosage: 30 MG
     Dates: start: 20201020, end: 20201209
  35. RINVOQ [Concomitant]
     Active Substance: UPADACITINIB
     Dosage: 15 MG
     Dates: start: 20201222, end: 20210217
  36. SKYRIZI [Concomitant]
     Active Substance: RISANKIZUMAB-RZAA
     Dosage: 150 MG
     Dates: start: 20220131, end: 20220131

REACTIONS (9)
  - Psoriatic arthropathy [Unknown]
  - Mucosal inflammation [Unknown]
  - Stomatitis [Unknown]
  - Anaphylactic reaction [Unknown]
  - Sinusitis [Unknown]
  - Oral herpes [Unknown]
  - Bronchitis [Unknown]
  - Contraindicated product administered [Unknown]
  - Documented hypersensitivity to administered product [Unknown]

NARRATIVE: CASE EVENT DATE: 20210902
